FAERS Safety Report 24664362 (Version 1)
Quarter: 2024Q4

REPORT INFORMATION
  Report Type: Spontaneous
  Country: JP (occurrence: JP)
  Receive Date: 20241126
  Receipt Date: 20241126
  Transmission Date: 20250115
  Serious: Yes (Other)
  Sender: CELLTRION
  Company Number: JP-CELLTRION INC.-2021JP001944

PATIENT

DRUGS (10)
  1. INFLIXIMAB [Suspect]
     Active Substance: INFLIXIMAB
     Indication: Crohn^s disease
     Dosage: 280 MG (WEIGHT: 56 KG)
     Route: 041
     Dates: start: 20181115, end: 20181115
  2. INFLIXIMAB [Suspect]
     Active Substance: INFLIXIMAB
     Dosage: 285 MG (WEIGHT: 57 KG)
     Route: 041
     Dates: start: 20190107, end: 20190107
  3. INFLIXIMAB [Suspect]
     Active Substance: INFLIXIMAB
     Dosage: 280 MG (WEIGHT: 56 KG)
     Route: 041
     Dates: start: 20190313, end: 20190313
  4. INFLIXIMAB [Suspect]
     Active Substance: INFLIXIMAB
     Dosage: 275 MG (WEIGHT: 55.4 KG)
     Route: 041
     Dates: start: 20190504, end: 20190504
  5. INFLIXIMAB [Suspect]
     Active Substance: INFLIXIMAB
     Dosage: 285 MG (WEIGHT: 57 KG)
     Route: 041
     Dates: start: 20191029, end: 20191029
  6. INFLIXIMAB [Suspect]
     Active Substance: INFLIXIMAB
     Dosage: 285 MG (WEIGHT: 57.4 KG) START TIME: 10:30
     Route: 041
     Dates: start: 20201210, end: 20201210
  7. INFLIXIMAB [Suspect]
     Active Substance: INFLIXIMAB
     Dosage: 290 MG (WEIGHT: 58 KG) START TIME: 10:50
     Route: 041
     Dates: start: 20211204, end: 20211204
  8. INFLIXIMAB [Suspect]
     Active Substance: INFLIXIMAB
     Dosage: 290 MG (WEIGHT: 58 KG) START TIME: 10:40
     Route: 041
     Dates: start: 20221222, end: 20221222
  9. INFLIXIMAB [Suspect]
     Active Substance: INFLIXIMAB
     Dosage: 295 MG (WEIGHT: 58.9 KG) START TIME: 14:00
     Route: 041
     Dates: start: 20231206, end: 20231206
  10. MESALAMINE [Concomitant]
     Active Substance: MESALAMINE
     Dosage: 3000 MILLIGRAM/DAY
     Route: 048

REACTIONS (6)
  - Vomiting [Unknown]
  - Gastric polyps [Not Recovered/Not Resolved]
  - Angular cheilitis [Recovered/Resolved]
  - Abdominal pain upper [Recovered/Resolved]
  - Intentional product use issue [Unknown]
  - Intentional product use issue [Unknown]

NARRATIVE: CASE EVENT DATE: 20190603
